FAERS Safety Report 10874746 (Version 6)
Quarter: 2016Q3

REPORT INFORMATION
  Report Type: Report from Study
  Country: AR (occurrence: AR)
  Receive Date: 20150227
  Receipt Date: 20160822
  Transmission Date: 20161109
  Serious: Yes (Life-Threatening)
  Sender: FDA-Public Use
  Company Number: AR-GLAXOSMITHKLINE-AR2015026032

PATIENT
  Age: 44 Year
  Sex: Female
  Weight: 75.5 kg

DRUGS (5)
  1. BELIMUMAB [Suspect]
     Active Substance: BELIMUMAB
     Indication: SYSTEMIC LUPUS ERYTHEMATOSUS
     Dosage: 10 MG/KG, CYC
     Route: 042
     Dates: start: 20141008, end: 20150225
  2. FOLIC ACID. [Concomitant]
     Active Substance: FOLIC ACID
     Indication: PROPHYLAXIS
     Dosage: 5 MG, WE
     Route: 048
     Dates: start: 201110
  3. VITAMIN D3 [Concomitant]
     Active Substance: CHOLECALCIFEROL
     Indication: VITAMIN D DEFICIENCY
     Dosage: 100000 UNK, CYC
     Route: 048
     Dates: start: 201110
  4. CALCIUM CITRATE [Concomitant]
     Active Substance: CALCIUM CITRATE
     Indication: OSTEOPENIA
     Dosage: 750 MG, QD
     Route: 048
     Dates: start: 201110
  5. METHOTREXATE. [Concomitant]
     Active Substance: METHOTREXATE
     Indication: SLE ARTHRITIS
     Dosage: 15 MG, WE
     Route: 030
     Dates: start: 201110

REACTIONS (1)
  - Hypersensitivity [Recovered/Resolved]

NARRATIVE: CASE EVENT DATE: 20150225
